FAERS Safety Report 18975169 (Version 2)
Quarter: 2022Q3

REPORT INFORMATION
  Report Type: Report from Study
  Country: CA (occurrence: CA)
  Receive Date: 20210305
  Receipt Date: 20220729
  Transmission Date: 20221027
  Serious: Yes (Other)
  Sender: FDA-Public Use
  Company Number: CA-NOVARTISPH-PHHY2018CA013105

PATIENT
  Age: 74 Year
  Sex: Female

DRUGS (2)
  1. JADENU [Suspect]
     Active Substance: DEFERASIROX
     Indication: Iron overload
     Dosage: 1080 MG, QD
     Route: 048
     Dates: start: 20180409
  2. JADENU [Suspect]
     Active Substance: DEFERASIROX
     Indication: Iron overload
     Dosage: 720 MG, QD
     Route: 048
     Dates: start: 20180409

REACTIONS (3)
  - Back pain [Unknown]
  - Inflammation [Unknown]
  - Serum ferritin decreased [Unknown]
